FAERS Safety Report 9512055 (Version 2)
Quarter: 2013Q3

REPORT INFORMATION
  Report Type: Spontaneous
  Country: GR (occurrence: None)
  Receive Date: 20130906
  Receipt Date: 20130912
  Transmission Date: 20140515
  Serious: Yes (Hospitalization)
  Sender: FDA-Public Use
  Company Number: SYM-2013-10335

PATIENT
  Age: 62 Year
  Sex: Male

DRUGS (1)
  1. METRONIDAZOLE (METRONIDAZOLE) (METRONIDAZOLE) [Suspect]
     Indication: PRODUCT USED FOR UNKNOWN INDICATION

REACTIONS (1)
  - Posterior reversible encephalopathy syndrome [None]
